FAERS Safety Report 10264311 (Version 6)
Quarter: 2016Q2

REPORT INFORMATION
  Report Type: Spontaneous
  Country: US (occurrence: US)
  Receive Date: 20140627
  Receipt Date: 20160620
  Transmission Date: 20160815
  Serious: Yes (Other)
  Sender: FDA-Public Use
  Company Number: US-GLAXOSMITHKLINE-A1051121A

PATIENT
  Sex: Female

DRUGS (14)
  1. BUPROPION SR [Suspect]
     Active Substance: BUPROPION
     Indication: BIPOLAR DISORDER
     Dosage: 150 MG, BID
     Route: 048
  2. TEGRETOL [Concomitant]
     Active Substance: CARBAMAZEPINE
  3. BUPROPION SR [Suspect]
     Active Substance: BUPROPION
     Indication: DEPRESSION
  4. MOBIC [Concomitant]
     Active Substance: MELOXICAM
  5. ASPIRIN. [Concomitant]
     Active Substance: ASPIRIN
  6. WELLBUTRIN SR [Suspect]
     Active Substance: BUPROPION HYDROCHLORIDE
     Dosage: 150 MG, UNK
  7. BUPROPION HYDROCHLORIDE. [Suspect]
     Active Substance: BUPROPION HYDROCHLORIDE
     Indication: BIPOLAR DISORDER
  8. BUPROPION SR [Suspect]
     Active Substance: BUPROPION
     Indication: ANXIETY
  9. PROZAC [Concomitant]
     Active Substance: FLUOXETINE HYDROCHLORIDE
  10. VITAMIN B1 [Concomitant]
     Active Substance: THIAMINE HYDROCHLORIDE
  11. VITAMIN D3 [Concomitant]
     Active Substance: CHOLECALCIFEROL
  12. WELLBUTRIN SR [Suspect]
     Active Substance: BUPROPION HYDROCHLORIDE
     Indication: BIPOLAR DISORDER
     Dosage: 150 MG TABLET UNKNOWN DOSING
     Route: 065
     Dates: start: 20070503
  13. VITAMIN B6 [Concomitant]
     Active Substance: PYRIDOXINE HYDROCHLORIDE
  14. IRON [Concomitant]
     Active Substance: IRON

REACTIONS (3)
  - Drug ineffective [Unknown]
  - Affect lability [Unknown]
  - Fall [Unknown]

NARRATIVE: CASE EVENT DATE: 2013
